FAERS Safety Report 16819310 (Version 2)
Quarter: 2019Q4

REPORT INFORMATION
  Report Type: Spontaneous
  Country: IT (occurrence: IT)
  Receive Date: 20190917
  Receipt Date: 20191009
  Transmission Date: 20200122
  Serious: Yes (Life-Threatening)
  Sender: FDA-Public Use
  Company Number: IT-MYLANLABS-2019M1087735

PATIENT
  Age: 8 Month
  Sex: Male
  Weight: 4.8 kg

DRUGS (4)
  1. VANCOMICINA MYLAN 1 G POLVERE PER SOLUZIONE PER INFUSIONE [Suspect]
     Active Substance: VANCOMYCIN HYDROCHLORIDE
     Dosage: 96 MG /10ML
     Route: 042
  2. SEVORANE [Concomitant]
     Active Substance: SEVOFLURANE
     Dosage: UNK
  3. VANCOMICINA MYLAN 1 G POLVERE PER SOLUZIONE PER INFUSIONE [Suspect]
     Active Substance: VANCOMYCIN HYDROCHLORIDE
     Indication: ANTIBIOTIC PROPHYLAXIS
     Dosage: 60 MILLIGRAM, TOTAL
     Route: 042
     Dates: start: 20190827
  4. ESMERON [Concomitant]
     Active Substance: ROCURONIUM BROMIDE
     Dosage: 15 MILLIGRAM

REACTIONS (3)
  - Angioedema [Recovered/Resolved]
  - Vasodilatation [Recovered/Resolved]
  - Hypotension [Recovered/Resolved]

NARRATIVE: CASE EVENT DATE: 20190827
